FAERS Safety Report 4637732-6 (Version None)
Quarter: 2005Q2

REPORT INFORMATION
  Report Type: 
  Country: None (occurrence: None)
  Receive Date: 20050418
  Receipt Date: 20050408
  Transmission Date: 20051028
  Serious: Yes (Hospitalization)
  Sender: FDA-Public Use
  Company Number: CM-MERCK-0504USA01305

PATIENT
  Age: 56 Year
  Sex: Female

DRUGS (1)
  1. MECTIZAN [Suspect]
     Route: 048
     Dates: start: 20050314, end: 20050314

REACTIONS (7)
  - ASTHENIA [None]
  - BACK PAIN [None]
  - DYSSTASIA [None]
  - HEADACHE [None]
  - PAIN [None]
  - PRURITUS [None]
  - VERTIGO [None]
